FAERS Safety Report 6341709-2 (Version None)
Quarter: 2009Q3

REPORT INFORMATION
  Report Type: 
  Country: None (occurrence: None)
  Receive Date: 20090904
  Receipt Date: 20090826
  Transmission Date: 20100115
  Serious: Yes (Other)
  Sender: FDA-Public Use
  Company Number: JP-ABBOTT-09P-087-0595124-00

PATIENT
  Age: 32 Year
  Sex: Female
  Weight: 42 kg

DRUGS (14)
  1. SEVOFLURANE [Suspect]
     Indication: MAINTENANCE OF ANAESTHESIA
     Route: 055
  2. FENTANYL [Suspect]
     Indication: DRUG USE FOR UNKNOWN INDICATION
     Route: 042
  3. THIOPENTAL SODIUM [Concomitant]
     Indication: INDUCTION OF ANAESTHESIA
     Route: 042
  4. VECURONIUM BROMIDE [Concomitant]
     Indication: INDUCTION OF ANAESTHESIA
     Route: 042
  5. NITROUS OXIDE [Concomitant]
     Indication: MAINTENANCE OF ANAESTHESIA
     Dosage: 4 LITERS/MINUTE
     Route: 055
  6. NITROGLYCERIN [Concomitant]
     Indication: ANAESTHESIA
     Dosage: 0.5- 2 V
     Route: 042
  7. DROPERIDOL [Concomitant]
     Indication: DRUG USE FOR UNKNOWN INDICATION
  8. DEXAMETHASONE SODIUM PHOSPHATE [Concomitant]
     Indication: DRUG USE FOR UNKNOWN INDICATION
  9. FLURBIPROFEN [Concomitant]
     Indication: DRUG USE FOR UNKNOWN INDICATION
  10. ATROPINE SULFATE [Concomitant]
     Indication: ANAESTHESIA REVERSAL
  11. NEOSTIGMINE METHYLSULFATE [Concomitant]
     Indication: ANAESTHESIA REVERSAL
  12. OXYGEN [Concomitant]
     Indication: MAINTENANCE OF ANAESTHESIA
     Dosage: 2 LITERS/MINUTE
     Route: 055
  13. OXYGEN [Concomitant]
     Dosage: 5 LITERS/MINUTE
     Route: 055
  14. FLUID [Concomitant]
     Indication: DRUG USE FOR UNKNOWN INDICATION
     Dosage: INFUSION
     Route: 042

REACTIONS (3)
  - HYPERCAPNIA [None]
  - OBSTRUCTIVE AIRWAYS DISORDER [None]
  - RESPIRATORY ARREST [None]
